FAERS Safety Report 8809355 (Version 2)
Quarter: 2012Q4

REPORT INFORMATION
  Report Type: Report from Study
  Country: US (occurrence: US)
  Receive Date: 20120926
  Receipt Date: 20121002
  Transmission Date: 20130627
  Serious: Yes (Hospitalization)
  Sender: FDA-Public Use
  Company Number: US-JNJFOC-20120906951

PATIENT
  Age: 17 Year
  Sex: Female
  Weight: 57.4 kg

DRUGS (13)
  1. REMICADE [Suspect]
     Indication: INFLAMMATORY BOWEL DISEASE
     Route: 042
  2. 5-ASA [Concomitant]
  3. HYDROCORTISONE [Concomitant]
  4. PREDNISONE [Concomitant]
  5. ANTIBIOTICS FOR IBD [Concomitant]
  6. PROBIOTICS [Concomitant]
  7. ACETAZOLAMIDE [Concomitant]
  8. DIPHENHYDRAMINE [Concomitant]
  9. FOLIC ACID [Concomitant]
  10. LANSOPRAZOLE [Concomitant]
  11. TRAMADOL [Concomitant]
  12. TYLENOL [Concomitant]
  13. ONDANSETRON [Concomitant]

REACTIONS (1)
  - Pancreatitis [Recovered/Resolved]
